FAERS Safety Report 16480557 (Version 1)
Quarter: 2019Q2

REPORT INFORMATION
  Report Type: Spontaneous
  Country: US (occurrence: US)
  Receive Date: 20190626
  Receipt Date: 20190626
  Transmission Date: 20190711
  Serious: Yes (Other)
  Sender: FDA-Public Use
  Company Number: PHHY2019US144119

PATIENT
  Age: 71 Year
  Sex: Male

DRUGS (3)
  1. PYRIDOSTIGMINE [Suspect]
     Active Substance: PYRIDOSTIGMINE
     Indication: MYASTHENIA GRAVIS
     Route: 065
  2. MYCOPHENOLATE [Suspect]
     Active Substance: MYCOPHENOLIC ACID
     Indication: MYASTHENIA GRAVIS
     Dosage: 1000 MG, BID
     Route: 065
  3. PREDNISONE. [Suspect]
     Active Substance: PREDNISONE
     Indication: MYASTHENIA GRAVIS
     Dosage: 20 MG, QD
     Route: 065

REACTIONS (5)
  - Lung infiltration [Unknown]
  - Pneumonia cryptococcal [Unknown]
  - Product use in unapproved indication [Unknown]
  - Histoplasmosis disseminated [Unknown]
  - Acute respiratory failure [Unknown]
